FAERS Safety Report 17167709 (Version 1)
Quarter: 2019Q4

REPORT INFORMATION
  Report Type: Spontaneous
  Country: GB (occurrence: GB)
  Receive Date: 20191218
  Receipt Date: 20191218
  Transmission Date: 20200122
  Serious: Yes (Other)
  Sender: FDA-Public Use
  Company Number: GB-AUROBINDO-AUR-APL-2019-105228

PATIENT
  Age: 36 Year
  Sex: Female
  Weight: 71 kg

DRUGS (1)
  1. METRONIDAZOLE. [Suspect]
     Active Substance: METRONIDAZOLE
     Indication: GINGIVITIS
     Dosage: 400 MILLIGRAM
     Route: 048
     Dates: start: 20191122, end: 20191122

REACTIONS (6)
  - Paraesthesia [Unknown]
  - Dizziness [Unknown]
  - Nausea [Unknown]
  - Paralysis [Recovering/Resolving]
  - Confusional state [Unknown]
  - Peripheral coldness [Unknown]

NARRATIVE: CASE EVENT DATE: 20191122
